FAERS Safety Report 4747982-6 (Version None)
Quarter: 2005Q3

REPORT INFORMATION
  Report Type: 
  Country: None (occurrence: None)
  Receive Date: 20050816
  Receipt Date: 20050808
  Transmission Date: 20060218
  Serious: Yes (Other)
  Sender: FDA-Public Use
  Company Number: 2005112695

PATIENT
  Age: 46 Year
  Sex: Female

DRUGS (8)
  1. CELEBREX [Suspect]
     Indication: ARTHRALGIA
     Dosage: 3 IN 1 D, ORAL
     Route: 048
  2. CELEBREX [Suspect]
     Indication: BONE PAIN
     Dosage: 3 IN 1 D, ORAL
     Route: 048
  3. CELEBREX [Suspect]
     Indication: PAIN
     Dosage: 3 IN 1 D, ORAL
     Route: 048
  4. BEXTRA [Suspect]
     Indication: ILL-DEFINED DISORDER
     Dosage: ORAL
     Route: 048
  5. REMIFEMIN PLUS (CIMICIFUGA RACEMOSA ROOT, HERBA HYPERICI) [Concomitant]
  6. ALL OTHER THERAPEUTIC PRODUCTS (ALL OTHER THERAPEUTIC PRODUCTS) [Concomitant]
  7. DURAGESIC [Concomitant]
  8. LEVOTHYROXINE SODIUM [Concomitant]

REACTIONS (8)
  - ANGINA PECTORIS [None]
  - BLOOD PRESSURE SYSTOLIC INCREASED [None]
  - FLUID RETENTION [None]
  - KNEE OPERATION [None]
  - NASOPHARYNGEAL DISORDER [None]
  - PHARYNGEAL OEDEMA [None]
  - SECRETION DISCHARGE [None]
  - SPINAL FUSION SURGERY [None]
